FAERS Safety Report 8765718 (Version 2)
Quarter: 2012Q4

REPORT INFORMATION
  Report Type: 
  Country: US (occurrence: US)
  Receive Date: 20120906
  Receipt Date: 20120927
  Transmission Date: 20130627
  Serious: No
  Sender: FDA-Public Use
  Company Number: US-PFIZER INC-2012213547

PATIENT
  Age: 68 Year
  Sex: Male
  Weight: 88.44 kg

DRUGS (1)
  1. VIAGRA [Suspect]
     Indication: ERECTILE DYSFUNCTION
     Dosage: 100 mg, as needed
     Route: 048

REACTIONS (4)
  - Product size issue [Unknown]
  - Product label issue [Unknown]
  - Pollakiuria [Unknown]
  - Drug ineffective [Unknown]
